FAERS Safety Report 9816318 (Version 3)
Quarter: 2014Q1

REPORT INFORMATION
  Report Type: Spontaneous
  Country: CA (occurrence: CA)
  Receive Date: 20140114
  Receipt Date: 20140327
  Transmission Date: 20141002
  Serious: Yes (Death, Other)
  Sender: FDA-Public Use
  Company Number: CA-BAXTER-2013BAX046575

PATIENT
  Age: 8 Year
  Sex: Female

DRUGS (2)
  1. DIANEAL PD4 SOLUTION WITH 1.5% DEXTROSE AND 2.5 MEQ/L CALCIUM [Suspect]
     Indication: CONGENITAL NEPHROTIC SYNDROME
     Route: 033
     Dates: start: 2010
  2. PHYSIONEAL 40 GLUCOSE 1.36% SOLUTION FOR PERITONEAL DIALYSIS [Suspect]
     Indication: CONGENITAL NEPHROTIC SYNDROME
     Route: 033
     Dates: start: 2010

REACTIONS (4)
  - Death [Fatal]
  - Convulsion [Unknown]
  - Brain death [Unknown]
  - Multimorbidity [Unknown]
